FAERS Safety Report 8718599 (Version 4)
Quarter: 2014Q3

REPORT INFORMATION
  Report Type: Spontaneous
  Country: US (occurrence: US)
  Receive Date: 20120810
  Receipt Date: 20140916
  Transmission Date: 20150326
  Serious: No
  Sender: FDA-Public Use
  Company Number: US-ASTRAZENECA-2012SE46952

PATIENT
  Age: 77 Year
  Sex: Male
  Weight: 110.2 kg

DRUGS (30)
  1. LISINOPRIL. [Suspect]
     Active Substance: LISINOPRIL
     Route: 048
  2. BABY ASPIRIN [Concomitant]
     Active Substance: ASPIRIN
  3. SITAGLIPTIN [Concomitant]
     Active Substance: SITAGLIPTIN
  4. AMLODIPINE [Concomitant]
     Active Substance: AMLODIPINE BESYLATE
  5. ATORVASTATIN [Concomitant]
     Active Substance: ATORVASTATIN
  6. POLYVINYL ALCOHOL/POVIDONE [Concomitant]
     Dosage: BID
  7. ECONAZOLE [Concomitant]
     Active Substance: ECONAZOLE
     Dosage: 1 APPLICATION BID
  8. OXYGEN. [Concomitant]
     Active Substance: OXYGEN
     Dosage: 2 LITERS PRN
  9. OXYCODONE ACETOMINOPHEN [Concomitant]
     Indication: ILL-DEFINED DISORDER
     Dosage: 5-325 MG 1-2 TABS Q6H
     Route: 065
  10. SYMBICORT [Suspect]
     Active Substance: BUDESONIDE\FORMOTEROL FUMARATE DIHYDRATE
     Indication: CHRONIC OBSTRUCTIVE PULMONARY DISEASE
     Dosage: 160/4.5MCG, 2 PUFFS BID
     Route: 055
  11. FUROSIMIDE [Concomitant]
     Active Substance: FUROSEMIDE
     Route: 048
  12. ALLOPURINOL. [Concomitant]
     Active Substance: ALLOPURINOL
     Route: 048
  13. VITAMIN D [Concomitant]
     Active Substance: CHOLECALCIFEROL
  14. ALBUTEROL. [Concomitant]
     Active Substance: ALBUTEROL
     Indication: DYSPNOEA
     Dosage: 0.083% QID
     Route: 055
  15. TESTOSTERONE CYPLONATE [Concomitant]
     Dosage: 200 MG/ML Q4WK
     Route: 065
  16. VITAMIN D [Concomitant]
     Active Substance: CHOLECALCIFEROL
     Dosage: 50000 UNIT CAPSULE WEEK
     Route: 048
  17. BABY ASPIRIN [Concomitant]
     Active Substance: ASPIRIN
     Dosage: UNKNOWN DAILY
  18. ALBUTEROL. [Concomitant]
     Active Substance: ALBUTEROL
     Indication: DYSPNOEA
     Dosage: 2.5 MG IN 3 ML TID
     Route: 055
  19. TADALAFIL [Concomitant]
     Active Substance: TADALAFIL
  20. TOPROL XL [Suspect]
     Active Substance: METOPROLOL SUCCINATE
     Route: 048
  21. MORPHINE (NON AZ PRODUCT) [Suspect]
     Active Substance: MORPHINE
     Route: 065
  22. MUPIROCIN. [Concomitant]
     Active Substance: MUPIROCIN
     Dosage: TID
     Route: 065
  23. SYMBICORT [Suspect]
     Active Substance: BUDESONIDE\FORMOTEROL FUMARATE DIHYDRATE
     Indication: CHRONIC OBSTRUCTIVE PULMONARY DISEASE
     Route: 055
  24. TOPROL XL [Suspect]
     Active Substance: METOPROLOL SUCCINATE
     Route: 048
  25. ALLOPURINOL. [Concomitant]
     Active Substance: ALLOPURINOL
  26. CLONIDINE. [Concomitant]
     Active Substance: CLONIDINE
     Route: 048
  27. GLIMEPIRIDE. [Concomitant]
     Active Substance: GLIMEPIRIDE
  28. PERCOCET [Concomitant]
     Active Substance: ACETAMINOPHEN\OXYCODONE HYDROCHLORIDE
     Dosage: 6 PILLS IN 24 HOURS
  29. JANUVIA [Concomitant]
     Active Substance: SITAGLIPTIN PHOSPHATE
  30. TIOTROPIUM [Concomitant]
     Active Substance: TIOTROPIUM
     Dosage: INHALE ONE 18MCG CAP DAILY
     Route: 055

REACTIONS (7)
  - Chronic obstructive pulmonary disease [Unknown]
  - Drug dose omission [Not Recovered/Not Resolved]
  - Drug hypersensitivity [Unknown]
  - Corneal bleeding [Unknown]
  - Off label use [Unknown]
  - Sleep apnoea syndrome [Unknown]
  - Intentional product misuse [Unknown]
